FAERS Safety Report 7183518-0 (Version None)
Quarter: 2010Q4

REPORT INFORMATION
  Report Type: 
  Country: None (occurrence: None)
  Receive Date: 20101222
  Receipt Date: 20101213
  Transmission Date: 20110411
  Serious: Yes (Other)
  Sender: FDA-Public Use
  Company Number: PHHY2010US73788

PATIENT
  Sex: Female

DRUGS (18)
  1. TRILEPTAL [Suspect]
     Indication: BIPOLAR DISORDER
     Dosage: 300 MG, BID
     Dates: start: 20080501, end: 20101001
  2. GEODON [Suspect]
     Indication: BIPOLAR DISORDER
     Dosage: 60 MG, QD
     Route: 048
     Dates: start: 20080501
  3. GEODON [Suspect]
     Dosage: 60 MG, QD
     Route: 048
  4. EFFEXOR [Suspect]
     Indication: DEPRESSION
     Dosage: 300 MG, QHS
     Dates: start: 20080501
  5. SYNTHROID [Concomitant]
     Dosage: UNK
  6. POTASSIUM [Concomitant]
     Dosage: UNK
  7. LASIX [Concomitant]
     Dosage: UNK
  8. SENOKOT [Concomitant]
     Dosage: UNK
  9. COLACE [Concomitant]
     Dosage: UNK
  10. LACTULOSE [Concomitant]
     Dosage: UNK
  11. AMITIZA [Concomitant]
     Dosage: UNK
  12. PRAVASTATIN [Concomitant]
     Indication: BLOOD CHOLESTEROL INCREASED
     Dosage: UNK
  13. CALCIUM [Concomitant]
     Dosage: UNK
  14. VITAMIN D [Concomitant]
     Dosage: UNK
  15. FISH OIL [Concomitant]
     Dosage: UNK
  16. ZIPRASIDONE HCL [Concomitant]
     Dosage: 80MG
  17. ZIPRASIDONE HCL [Concomitant]
     Dosage: 60MG
  18. LAXATIVES [Concomitant]

REACTIONS (6)
  - CONSTIPATION [None]
  - MANIA [None]
  - MEMORY IMPAIRMENT [None]
  - OEDEMA PERIPHERAL [None]
  - URINARY RETENTION [None]
  - WEIGHT INCREASED [None]
